FAERS Safety Report 8376147 (Version 2)
Quarter: 2013Q1

REPORT INFORMATION
  Report Type: Report from Study
  Country: US (occurrence: US)
  Receive Date: 20120129
  Receipt Date: 20130129
  Transmission Date: 20140127
  Serious: No
  Sender: FDA-Public Use
  Company Number: US-ABBOTT-11P-163-0885700-00

PATIENT
  Age: 62 Year
  Sex: Male

DRUGS (9)
  1. HUMIRA 40 MG/0.8 ML PEN [Suspect]
     Indication: CROHN^S DISEASE
     Dosage: ONE TIME LOADING DOSE
     Dates: start: 20111210
  2. METHOTREXATE [Concomitant]
     Indication: PRODUCT USED FOR UNKNOWN INDICATION
     Dosage: 8 TABS EVERY WEDNESDAY
  3. CELEBREX [Concomitant]
     Indication: ARTHRITIS
  4. LIALDA [Concomitant]
     Indication: PRODUCT USED FOR UNKNOWN INDICATION
     Dosage: 4 TABS DAILY
  5. DICYCLOMINE [Concomitant]
     Indication: PRODUCT USED FOR UNKNOWN INDICATION
  6. LOPERAMIDE [Concomitant]
     Indication: CROHN^S DISEASE
     Dosage: 1-2 TABS DAILY
  7. FOLIC ACID [Concomitant]
     Indication: PRODUCT USED FOR UNKNOWN INDICATION
  8. VITAMIN D [Concomitant]
     Indication: PRODUCT USED FOR UNKNOWN INDICATION
  9. ZANTAC [Concomitant]
     Indication: GASTROOESOPHAGEAL REFLUX DISEASE
     Dosage: 75

REACTIONS (4)
  - Abdominal pain [Recovering/Resolving]
  - Diarrhoea [Not Recovered/Not Resolved]
  - Drug effect incomplete [Unknown]
  - Activities of daily living impaired [Unknown]
